FAERS Safety Report 8928959 (Version 1)
Quarter: 2012Q4

REPORT INFORMATION
  Report Type: 
  Country: IN (occurrence: IN)
  Receive Date: 20121128
  Receipt Date: 20121128
  Transmission Date: 20130627
  Serious: Yes (Hospitalization)
  Sender: FDA-Public Use
  Company Number: PHHY2012IN108463

PATIENT
  Age: 76 Year
  Sex: Female

DRUGS (2)
  1. ACLASTA [Suspect]
     Indication: OSTEOPOROSIS
     Dosage: 5mg/100ml
     Route: 042
     Dates: start: 20121011
  2. IROVEL-H [Concomitant]
     Indication: HYPERTENSION
     Route: 048

REACTIONS (4)
  - Brain injury [Recovering/Resolving]
  - Feeling abnormal [Recovering/Resolving]
  - Loss of consciousness [Recovering/Resolving]
  - Activities of daily living impaired [Recovering/Resolving]
